FAERS Safety Report 10671083 (Version 4)
Quarter: 2015Q1

REPORT INFORMATION
  Report Type: Report from Study
  Country: DE (occurrence: AT)
  Receive Date: 20141223
  Receipt Date: 20150112
  Transmission Date: 20150720
  Serious: Yes (Death, Hospitalization)
  Sender: FDA-Public Use
  Company Number: DE-SA-2014SA166049

PATIENT
  Age: 70 Year
  Sex: Male
  Weight: 86 kg

DRUGS (11)
  1. UROSIN [Concomitant]
     Active Substance: ALLOPURINOL
  2. XGEVA [Concomitant]
     Active Substance: DENOSUMAB
  3. LONQUEX [Concomitant]
     Active Substance: LIPEGFILGRASTIM
     Dates: start: 20141111
  4. CABAZITAXEL [Suspect]
     Active Substance: CABAZITAXEL
     Indication: PROSTATE CANCER METASTATIC
     Route: 065
     Dates: start: 20140818, end: 20140818
  5. BISOPROLOL FUMARATE/HYDROCHLOROTHIAZIDE [Concomitant]
  6. SEDACORON [Concomitant]
     Active Substance: AMIODARONE HYDROCHLORIDE
  7. THROMBO ASS [Concomitant]
     Active Substance: ASPIRIN
  8. PREDNISONE. [Suspect]
     Active Substance: PREDNISONE
     Indication: PROSTATE CANCER METASTATIC
     Route: 065
  9. CABAZITAXEL [Suspect]
     Active Substance: CABAZITAXEL
     Indication: PROSTATE CANCER METASTATIC
     Route: 065
     Dates: start: 20141110, end: 20141110
  10. PREDNISOLON [Concomitant]
     Active Substance: PREDNISOLONE
  11. ELIGARD [Concomitant]
     Active Substance: LEUPROLIDE ACETATE

REACTIONS (1)
  - Interstitial lung disease [Fatal]

NARRATIVE: CASE EVENT DATE: 20141126
